FAERS Safety Report 8983098 (Version 3)
Quarter: 2013Q2

REPORT INFORMATION
  Report Type: Report from Study
  Country: DE (occurrence: DE)
  Receive Date: 20121224
  Receipt Date: 20130530
  Transmission Date: 20140414
  Serious: Yes (Death, Hospitalization, Disabling, Other)
  Sender: FDA-Public Use
  Company Number: DE-OTSUKA-EU-2011-10223

PATIENT
  Sex: Male
  Weight: 90 kg

DRUGS (52)
  1. SAMSCA [Suspect]
     Indication: INAPPROPRIATE ANTIDIURETIC HORMONE SECRETION
     Dosage: 15 MG MILLIGRAM(S), DAILY DOSE
     Route: 048
     Dates: start: 20110531, end: 20110531
  2. SAMSCA [Suspect]
     Dosage: 7.5 MG MILLIGRAM(S), DAILY DOSE
     Route: 048
     Dates: start: 20110601, end: 20110601
  3. SAMSCA [Suspect]
     Dosage: 7.5 MG MILLIGRAM(S), DAILY DOSE
     Route: 048
     Dates: start: 20110602, end: 20110602
  4. SAMSCA [Suspect]
     Dosage: 7.5 MG MILLIGRAM(S), DAILY DOSE
     Route: 048
     Dates: start: 20110604, end: 20110614
  5. SAMSCA [Suspect]
     Dosage: 15 MG MILLIGRAM(S), DAILY DOSE
     Route: 048
     Dates: start: 20110615, end: 20110621
  6. SAMSCA [Suspect]
     Dosage: 15 MG MILLIGRAM(S), DAILY DOSE
     Route: 048
     Dates: start: 20110621, end: 201112
  7. SALINE [Concomitant]
     Dosage: 154 MEQ, UNKNOWN
     Route: 065
     Dates: start: 20110629, end: 20110630
  8. SALINE [Concomitant]
     Dosage: 154 MEQ, UNKNOWN
     Route: 065
     Dates: start: 20110704, end: 20110705
  9. AMLODIPIN [Concomitant]
     Indication: HYPERTENSION
     Dosage: 5 MG MILLIGRAM(S), DAILY DOSE
     Route: 048
     Dates: start: 20110528, end: 20110529
  10. AMLODIPIN [Concomitant]
     Dosage: 10 MG MILLIGRAM(S), DAILY DOSE
     Route: 048
     Dates: start: 20110621
  11. ASS [Concomitant]
     Indication: PERIPHERAL ARTERIAL OCCLUSIVE DISEASE
     Dosage: 100 MG MILLIGRAM(S), DAILY DOSE
     Route: 048
     Dates: start: 20090406, end: 20110617
  12. ASS [Concomitant]
     Dosage: 100 MG MILLIGRAM(S), DAILY DOSE
     Route: 048
     Dates: start: 20110708
  13. RAMIPRIL [Concomitant]
     Indication: HYPERTENSION
     Dosage: 10 MG MILLIGRAM(S), DAILY DOSE
     Route: 048
     Dates: start: 20080418, end: 20110528
  14. RAMIPRIL [Concomitant]
     Dosage: 10 MG MILLIGRAM(S), DAILY DOSE
     Route: 048
     Dates: start: 20110608
  15. METAMIZOLE [Concomitant]
     Indication: PAIN
     Dosage: 80 GTT DROP(S), PRN
     Route: 048
     Dates: start: 20090121, end: 20110528
  16. METAMIZOLE [Concomitant]
     Dosage: 60 GTT DROP(S), DAILY DOSE
     Route: 048
     Dates: start: 20110624, end: 20110624
  17. IBUFLAM [Concomitant]
     Indication: ANALGESIC THERAPY
     Dosage: 1200 MG MILLIGRAM(S), DAILY DOSE
     Route: 048
     Dates: start: 20110719
  18. CEFPODOXIM AL [Concomitant]
     Indication: PNEUMONIA
     Dosage: 400 MG MILLIGRAM(S), DAILY DOSE
     Route: 048
     Dates: start: 20111025, end: 20111027
  19. BERLINSULIN H BASAL [Concomitant]
     Indication: TYPE 2 DIABETES MELLITUS
     Dosage: UNK, UNKNOWN
     Route: 058
     Dates: start: 20051210
  20. BERLINSULIN H BASAL [Concomitant]
     Dosage: 22 IU, DAILY DOSE
     Route: 058
     Dates: start: 20110607, end: 20110620
  21. BERLINSULIN H NORMAL [Concomitant]
     Indication: TYPE 2 DIABETES MELLITUS
     Dosage: 16 IU, DAILY DOSE
     Route: 058
     Dates: start: 20051210
  22. BERLINSULIN H NORMAL [Concomitant]
     Dosage: 32 IU, DAILY DOSE
     Route: 058
     Dates: start: 20110607, end: 20110620
  23. ROCEPHIN [Concomitant]
     Indication: PNEUMONIA
     Dosage: 2 G GRAM(S), DAILY DOSE
     Route: 042
     Dates: start: 20111021, end: 20111025
  24. FOSAMAX [Concomitant]
     Indication: CHRONIC OBSTRUCTIVE PULMONARY DISEASE
     Dosage: 70 MG MILLIGRAM(S), QW
     Route: 048
     Dates: start: 20111026
  25. ACC [Concomitant]
     Indication: PNEUMONIA
     Dosage: 1 DF DOSAGE FORM, DAILY DOSE
     Route: 048
     Dates: start: 20111023, end: 20111027
  26. SULTANOL [Concomitant]
     Indication: CHRONIC OBSTRUCTIVE PULMONARY DISEASE
     Dosage: 1 DF DOSAGE FORM, DAILY DOSE
     Route: 050
     Dates: start: 20110530, end: 20110530
  27. SULTANOL [Concomitant]
     Dosage: 4 DF DOSAGE FORM, DAILY DOSE
     Route: 050
     Dates: start: 20110531, end: 20110601
  28. SULTANOL [Concomitant]
     Dosage: 4 DF DOSAGE FORM, DAILY DOSE
     Route: 050
     Dates: start: 20110601, end: 20110621
  29. SULTANOL [Concomitant]
     Dosage: 1 DF DOSAGE FORM, DAILY DOSE
     Route: 050
     Dates: start: 20111021, end: 20111021
  30. SULTANOL [Concomitant]
     Dosage: 1 DF DOSAGE FORM, DAILY DOSE
     Route: 050
     Dates: start: 20111022, end: 20111027
  31. ATROVENT [Concomitant]
     Indication: CHRONIC OBSTRUCTIVE PULMONARY DISEASE
     Dosage: 1 DF DOSAGE FORM, DAILY DOSE
     Route: 050
     Dates: start: 20110530, end: 20110530
  32. ATROVENT [Concomitant]
     Dosage: 4 DF DOSAGE FORM, DAILY DOSE
     Route: 050
     Dates: start: 20110531, end: 20110601
  33. ATROVENT [Concomitant]
     Dosage: 4 DF DOSAGE FORM, DAILY DOSE
     Route: 050
     Dates: start: 20110601, end: 20110621
  34. ATROVENT [Concomitant]
     Dosage: 1 DF DOSAGE FORM, DAILY DOSE
     Route: 050
     Dates: start: 20111021, end: 20111021
  35. ATROVENT [Concomitant]
     Dosage: 1 DF DOSAGE FORM, DAILY DOSE
     Route: 050
     Dates: start: 20111022, end: 20111027
  36. COTRIM FORTE [Concomitant]
     Indication: PNEUMONIA
     Dosage: 1 DF DOSAGE FORM, DAILY DOSE
     Route: 048
     Dates: start: 20111021, end: 20111021
  37. COTRIM FORTE [Concomitant]
     Dosage: 2 DF DOSAGE FORM, DAILY DOSE
     Route: 048
     Dates: start: 20111024, end: 20111024
  38. COTRIM FORTE [Concomitant]
     Dosage: 2 DF DOSAGE FORM, DAILY DOSE
     Route: 048
     Dates: start: 20111026, end: 20111026
  39. HEPARIN [Concomitant]
     Indication: THROMBOSIS PROPHYLAXIS
     Dosage: 50 ML MILLILITRE(S), DAILY DOSE
     Route: 042
     Dates: start: 20110528, end: 20110601
  40. DALTEPARIN [Concomitant]
     Indication: THROMBOSIS PROPHYLAXIS
     Dosage: 2500 IU, DAILY DOSE
     Route: 058
     Dates: start: 20110601, end: 20110622
  41. DALTEPARIN [Concomitant]
     Dosage: 5000 IU, DAILY DOSE
     Route: 058
     Dates: start: 20111024
  42. DELIX [Concomitant]
     Indication: HYPERTENSION
     Dosage: 5 MG MILLIGRAM(S), DAILY DOSE
     Route: 048
     Dates: start: 20110602, end: 20110707
  43. VESDIL [Concomitant]
     Indication: HYPERTENSION
     Dosage: 7.5 MG MILLIGRAM(S), DAILY DOSE
     Route: 048
     Dates: start: 20110530, end: 20110601
  44. AMLODIPIN [Concomitant]
     Indication: HYPERTENSION
     Dosage: 10 MG MILLIGRAM(S), DAILY DOSE
     Route: 048
     Dates: start: 20110530, end: 20110601
  45. AMLODIPIN [Concomitant]
     Dosage: 5 MG MILLIGRAM(S), DAILY DOSE
     Route: 048
     Dates: start: 20110602, end: 20110621
  46. KALINOR [Concomitant]
     Indication: HYPOKALAEMIA
     Dosage: 1 DF DOSAGE FORM, DAILY DOSE
     Route: 048
     Dates: start: 20110531, end: 20110531
  47. KLACID [Concomitant]
     Indication: HELICOBACTER INFECTION
     Dosage: 1000 MG MILLIGRAM(S), DAILY DOSE
     Route: 048
     Dates: start: 20110617, end: 20110622
  48. AMOXICILLIN [Concomitant]
     Indication: HELICOBACTER INFECTION
     Dosage: 2000 MG MILLIGRAM(S), DAILY DOSE
     Route: 048
     Dates: start: 20110617, end: 20110622
  49. PANTOZOL [Concomitant]
     Indication: HELICOBACTER INFECTION
     Dosage: 80 MG MILLIGRAM(S), DAILY DOSE
     Route: 048
     Dates: start: 20110617, end: 20110707
  50. PANTOPRAZOLE [Concomitant]
     Indication: PROPHYLAXIS
     Dosage: 80 MG MILLIGRAM(S), DAILY DOSE
     Route: 048
     Dates: start: 20110708
  51. BERLINSULIN H NORMAL [Concomitant]
     Indication: DIABETES MELLITUS
     Dosage: 32 IU, DAILY DOSE
     Route: 058
     Dates: start: 20110607, end: 20110620
  52. BERLINSULIN H BASAL [Concomitant]
     Indication: DIABETES MELLITUS
     Dosage: 22 IU, DAILY DOSE
     Route: 058
     Dates: start: 20110607, end: 20110620

REACTIONS (9)
  - Death [Fatal]
  - Pancytopenia [Recovering/Resolving]
  - Pneumonia [Recovered/Resolved]
  - Prostate cancer [Not Recovered/Not Resolved]
  - Vertigo [Recovered/Resolved]
  - Fall [Recovered/Resolved]
  - Candida infection [Recovered/Resolved]
  - Injection site infection [Recovered/Resolved]
  - Wrong technique in drug usage process [Unknown]
